FAERS Safety Report 10466468 (Version 1)
Quarter: 2014Q3

REPORT INFORMATION
  Report Type: Spontaneous
  Country: NL (occurrence: None)
  Receive Date: 20140917
  Receipt Date: 20140917
  Transmission Date: 20150326
  Serious: Yes (Hospitalization)
  Sender: FDA-Public Use
  Company Number: 2014SA106982

PATIENT
  Age: 6 Year
  Sex: Male

DRUGS (1)
  1. PLERIXAFOR [Suspect]
     Active Substance: PLERIXAFOR
     Indication: NEUROBLASTOMA
     Dates: start: 20140724

REACTIONS (3)
  - Bacteraemia [None]
  - Pulmonary embolism [None]
  - Transplant [None]

NARRATIVE: CASE EVENT DATE: 20140806
